FAERS Safety Report 12364721 (Version 2)
Quarter: 2016Q2

REPORT INFORMATION
  Report Type: Spontaneous
  Country: US (occurrence: US)
  Receive Date: 20160512
  Receipt Date: 20160519
  Transmission Date: 20160815
  Serious: No
  Sender: FDA-Public Use
  Company Number: US-BELCHER PHARMACEUTICALS, LLC-2016VTS00007

PATIENT
  Sex: Female

DRUGS (1)
  1. CHLORDIAZEPOXIDE-CLIDINIUM [Suspect]
     Active Substance: CHLORDIAZEPOXIDE\CLIDINIUM
     Dosage: 3 TABLETS, UNK
     Dates: start: 2016

REACTIONS (3)
  - Lip swelling [Unknown]
  - Headache [Unknown]
  - Dizziness [Unknown]

NARRATIVE: CASE EVENT DATE: 2016
